FAERS Safety Report 6111805-3 (Version None)
Quarter: 2009Q1

REPORT INFORMATION
  Report Type: 
  Country: None (occurrence: None)
  Receive Date: 20090311
  Receipt Date: 20090226
  Transmission Date: 20090719
  Serious: Yes (Hospitalization)
  Sender: FDA-Public Use
  Company Number: CA-ROCHE-611327

PATIENT
  Sex: Female

DRUGS (5)
  1. MYCOPHENOLATE MOFETIL [Suspect]
     Indication: GLOMERULONEPHRITIS PROLIFERATIVE
     Route: 048
     Dates: start: 20081212, end: 20090123
  2. MYCOPHENOLATE MOFETIL [Suspect]
     Route: 048
     Dates: start: 20090206, end: 20090217
  3. PREDNISONE [Suspect]
     Indication: GLOMERULONEPHRITIS PROLIFERATIVE
     Route: 048
     Dates: start: 20081212
  4. BLINDED ABATACEPT [Suspect]
     Indication: GLOMERULONEPHRITIS PROLIFERATIVE
     Dosage: 1 PER 28 DAYS. DOSE WAS UNBLINDED ON 13 FEBRUARY
     Route: 042
     Dates: start: 20081212
  5. ESOMEPRAZOLE [Concomitant]
     Dates: start: 20081202

REACTIONS (1)
  - CHONDRITIS [None]
